FAERS Safety Report 6805954-1 (Version None)
Quarter: 2010Q2

REPORT INFORMATION
  Report Type: 
  Country: None (occurrence: None)
  Receive Date: 20100629
  Receipt Date: 20080114
  Transmission Date: 20101027
  Serious: Yes (Hospitalization, Other)
  Sender: FDA-Public Use
  Company Number: US-PFIZER INC-2007102510

PATIENT
  Sex: Female
  Weight: 63.5 kg

DRUGS (1)
  1. BEXTRA [Suspect]
     Indication: RHEUMATOID ARTHRITIS
     Dates: start: 20030318, end: 20050304

REACTIONS (1)
  - MYOCARDIAL INFARCTION [None]
